FAERS Safety Report 24228533 (Version 1)
Quarter: 2024Q3

REPORT INFORMATION
  Report Type: Spontaneous
  Country: FR (occurrence: None)
  Receive Date: 20240820
  Receipt Date: 20240820
  Transmission Date: 20241016
  Serious: Yes (Hospitalization)
  Sender: ASTRAZENECA
  Company Number: 2024A188666

PATIENT
  Age: 86 Year
  Sex: Female

DRUGS (10)
  1. OMEPRAZOLE [Suspect]
     Active Substance: OMEPRAZOLE
  2. KARDEGIC [Concomitant]
     Active Substance: ASPIRIN DL-LYSINE
  3. ZOPICLONE [Concomitant]
     Active Substance: ZOPICLONE
  4. ATORVASTATIN [Concomitant]
     Active Substance: ATORVASTATIN
  5. ARANESP [Concomitant]
     Active Substance: DARBEPOETIN ALFA
  6. COLCHICINE [Concomitant]
     Active Substance: COLCHICINE
  7. PRIMPERAN [Concomitant]
     Active Substance: METOCLOPRAMIDE HYDROCHLORIDE
  8. CALCIUM CARBONATE [Concomitant]
     Active Substance: CALCIUM CARBONATE
  9. LEVOTHYROXINE [Concomitant]
     Active Substance: LEVOTHYROXINE\LEVOTHYROXINE SODIUM
  10. DULOXETINE HYDROCHLORIDE [Concomitant]
     Active Substance: DULOXETINE HYDROCHLORIDE

REACTIONS (3)
  - Hypocalcaemia [Not Recovered/Not Resolved]
  - Pyelonephritis acute [Unknown]
  - Seizure [Unknown]

NARRATIVE: CASE EVENT DATE: 20240701
